FAERS Safety Report 25961050 (Version 1)
Quarter: 2025Q4

REPORT INFORMATION
  Report Type: Other
  Country: EU (occurrence: EU)
  Receive Date: 20251027
  Receipt Date: 20251027
  Transmission Date: 20260118
  Serious: Yes (Hospitalization)
  Sender: NOVITIUM PHARMA
  Company Number: EU-NOVITIUM PHARMA-000159

PATIENT
  Age: 79 Year
  Sex: Female

DRUGS (4)
  1. PREDNISONE [Suspect]
     Active Substance: PREDNISONE
     Indication: Cerebral amyloid angiopathy
     Route: 048
  2. DIAZEPAM [Concomitant]
     Active Substance: DIAZEPAM
     Indication: Partial seizures
  3. LEVETIRACETAM [Concomitant]
     Active Substance: LEVETIRACETAM
     Indication: Partial seizures
  4. METHYLPREDNISOLONE [Concomitant]
     Active Substance: METHYLPREDNISOLONE
     Indication: Cerebral amyloid angiopathy

REACTIONS (1)
  - Urinary tract infection [Unknown]
